FAERS Safety Report 8348134-3 (Version None)
Quarter: 2012Q2

REPORT INFORMATION
  Report Type: 
  Country: None (occurrence: None)
  Receive Date: 20120509
  Receipt Date: 20120508
  Transmission Date: 20120825
  Serious: Yes (Other)
  Sender: FDA-Public Use
  Company Number: ZA-PFIZER INC-2012112832

PATIENT
  Age: 70 Year
  Sex: Female

DRUGS (6)
  1. ASPIRIN [Concomitant]
     Indication: HYPERTENSION
     Dosage: 81 MG, 1X/DAY
     Route: 048
     Dates: end: 20120503
  2. BISOPROLOL FUMARATE [Concomitant]
     Indication: HYPERTENSION
     Dosage: 5 MG, 1X/DAY
     Route: 048
     Dates: end: 20120503
  3. MODURETIC 5-50 [Concomitant]
     Dosage: ONE AND A HALF TABLETS DAILY
     Route: 048
  4. VARENICLINE TARTRATE [Suspect]
     Dosage: 1 MG, 1X/DAY
     Route: 048
     Dates: start: 20120411, end: 20120503
  5. VARENICLINE TARTRATE [Suspect]
     Indication: SMOKING CESSATION THERAPY
     Dosage: 0.5 MG, 1X/DAY
     Route: 048
     Dates: start: 20120404, end: 20120410
  6. ARCOXIA [Concomitant]
     Dosage: UNK
     Route: 048

REACTIONS (3)
  - THROAT TIGHTNESS [None]
  - HEART RATE IRREGULAR [None]
  - MUSCULAR WEAKNESS [None]
